FAERS Safety Report 17170343 (Version 1)
Quarter: 2019Q4

REPORT INFORMATION
  Report Type: Spontaneous
  Country: CN (occurrence: CN)
  Receive Date: 20191218
  Receipt Date: 20191218
  Transmission Date: 20200122
  Serious: Yes (Other)
  Sender: FDA-Public Use
  Company Number: CN-PFIZER INC-2019539694

PATIENT
  Age: 5 Year
  Sex: Male
  Weight: 17 kg

DRUGS (2)
  1. CEFATHIAMIDINE [Suspect]
     Active Substance: CEFTRIAXONE SODIUM
     Indication: ANTIINFLAMMATORY THERAPY
     Dosage: 0.8 G, 2X/DAY
     Route: 041
     Dates: start: 20191210, end: 20191210
  2. SOLU-MEDROL [Suspect]
     Active Substance: METHYLPREDNISOLONE SODIUM SUCCINATE
     Indication: ASTHMA
     Dosage: 20 MG, 1X/DAY
     Route: 041
     Dates: start: 20191210, end: 20191210

REACTIONS (5)
  - Heart rate increased [Recovering/Resolving]
  - Respiratory rate increased [Recovering/Resolving]
  - Rash erythematous [Recovering/Resolving]
  - Pruritus [Recovering/Resolving]
  - Dysphoria [Recovering/Resolving]

NARRATIVE: CASE EVENT DATE: 20191210
